FAERS Safety Report 10951197 (Version 1)
Quarter: 2015Q1

REPORT INFORMATION
  Report Type: Spontaneous
  Country: US (occurrence: US)
  Receive Date: 20150324
  Receipt Date: 20150324
  Transmission Date: 20150721
  Serious: Yes (Hospitalization, Other)
  Sender: FDA-Public Use
  Company Number: US-BAYER-2015-045393

PATIENT
  Age: 70 Year
  Sex: Male

DRUGS (5)
  1. ONDANSETRON [Suspect]
     Active Substance: ONDANSETRON
     Dosage: UNK
     Dates: start: 201304, end: 201409
  2. LORAZEPAM. [Suspect]
     Active Substance: LORAZEPAM
     Dosage: UNK
     Dates: start: 201304, end: 201409
  3. INLYTA [Suspect]
     Active Substance: AXITINIB
     Dosage: UNK
     Dates: start: 201304
  4. TRAMADOL [Suspect]
     Active Substance: TRAMADOL
     Dosage: UNK
     Dates: start: 201408, end: 201409
  5. CIPRO [Suspect]
     Active Substance: CIPROFLOXACIN HYDROCHLORIDE
     Dosage: UNK
     Dates: start: 201409, end: 201409

REACTIONS (3)
  - Blood creatine increased [None]
  - Renal failure [None]
  - Renal failure [None]

NARRATIVE: CASE EVENT DATE: 201409
